FAERS Safety Report 10436771 (Version 2)
Quarter: 2014Q3

REPORT INFORMATION
  Report Type: Spontaneous
  Country: FR (occurrence: FR)
  Receive Date: 20140908
  Receipt Date: 20140908
  Transmission Date: 20150326
  Serious: Yes (Hospitalization)
  Sender: FDA-Public Use
  Company Number: FR-TEVA-338783ISR

PATIENT
  Age: 65 Year
  Sex: Female

DRUGS (8)
  1. PREDNISONE. [Concomitant]
     Active Substance: PREDNISONE
     Indication: LYMPHOMA
     Dates: start: 201102, end: 2011
  2. UNSPECIFIED ANALGESIC TREATMENTS LEVEL I, II AND III [Concomitant]
     Dates: start: 201110, end: 201201
  3. G-CSF (TEVAGRASTIM) 30M [Suspect]
     Active Substance: FILGRASTIM
     Indication: PROPHYLAXIS
     Dosage: A TOTAL OF 6 COURSES WAS PERFORMED
     Route: 058
     Dates: start: 201102, end: 2011
  4. NEUROLEPTIC DRUGS NOS [Concomitant]
     Active Substance: UNSPECIFIED INGREDIENT
     Dates: start: 201110, end: 201201
  5. VINCRISTINE [Concomitant]
     Active Substance: VINCRISTINE
     Indication: LYMPHOMA
     Dates: start: 201102, end: 2011
  6. DOXORUBICINE [Concomitant]
     Active Substance: DOXORUBICIN
     Indication: LYMPHOMA
     Dates: start: 201102, end: 2011
  7. MABTHERA [Concomitant]
     Active Substance: RITUXIMAB
     Indication: LYMPHOMA
     Dates: start: 201102, end: 2011
  8. CYCLOPHOSPHAMIDE. [Concomitant]
     Active Substance: CYCLOPHOSPHAMIDE
     Indication: LYMPHOMA
     Dates: start: 201102, end: 2011

REACTIONS (1)
  - Myalgia [Recovered/Resolved]

NARRATIVE: CASE EVENT DATE: 201110
